FAERS Safety Report 21684839 (Version 1)
Quarter: 2022Q4

REPORT INFORMATION
  Report Type: Spontaneous
  Country: FR (occurrence: FR)
  Receive Date: 20221205
  Receipt Date: 20221205
  Transmission Date: 20230113
  Serious: Yes (Death)
  Sender: FDA-Public Use
  Company Number: FR-JNJFOC-20211056037

PATIENT
  Age: 76 Year
  Sex: Female

DRUGS (3)
  1. DEXAMETHASONE [Suspect]
     Active Substance: DEXAMETHASONE
     Indication: Plasma cell myeloma
     Dosage: 1 DOSE/WEEK, 4 WEEKS/CYCLE
     Route: 065
  2. DARATUMUMAB [Suspect]
     Active Substance: DARATUMUMAB
     Indication: Plasma cell myeloma
     Dosage: ONCE A WEEK UNTIL WEEK 9 THEN EVERY 2-3 WEEKS UNTIL 6 MONTHS, THEN ONCE A MONTH. ?LINE OF TRET. 4.
     Route: 065
     Dates: end: 20191122
  3. BORTEZOMIB [Suspect]
     Active Substance: BORTEZOMIB
     Indication: Plasma cell myeloma
     Dosage: 2 DOSES/WEEK, 4 WEEKS/ CYCLE
     Route: 065

REACTIONS (1)
  - Septic shock [Fatal]

NARRATIVE: CASE EVENT DATE: 20191122
